FAERS Safety Report 6140929-X (Version None)
Quarter: 2009Q2

REPORT INFORMATION
  Report Type: 
  Country: None (occurrence: None)
  Receive Date: 20090402
  Receipt Date: 20090326
  Transmission Date: 20091009
  Serious: Yes (Hospitalization)
  Sender: FDA-Public Use
  Company Number: FR-ASTRAZENECA-2009CG00593

PATIENT
  Age: 17957 Day
  Sex: Female

DRUGS (7)
  1. NEXIUM [Suspect]
     Indication: PROPHYLAXIS AGAINST GASTROINTESTINAL ULCER
     Route: 048
     Dates: start: 20060101
  2. REMICADE [Suspect]
     Indication: ANKYLOSING SPONDYLITIS
     Route: 041
     Dates: start: 20050201
  3. NABUCOX [Suspect]
     Indication: ANKYLOSING SPONDYLITIS
     Route: 048
     Dates: start: 20060101
  4. CRESTOR [Concomitant]
     Indication: HYPERCHOLESTEROLAEMIA
     Route: 048
     Dates: start: 20080101, end: 20090201
  5. MALARONE [Concomitant]
     Indication: MALARIA PROPHYLAXIS
     Dates: start: 20081001, end: 20081101
  6. CLONAZEPAM [Concomitant]
     Dates: start: 19990101
  7. SKENAN [Concomitant]
     Dates: start: 19990101

REACTIONS (4)
  - BLOOD AMYLASE INCREASED [None]
  - ECZEMA [None]
  - PRURIGO [None]
  - PRURITUS GENERALISED [None]
